FAERS Safety Report 4638719-X (Version None)
Quarter: 2005Q2

REPORT INFORMATION
  Report Type: 
  Country: None (occurrence: None)
  Receive Date: 20050328
  Receipt Date: 20050103
  Transmission Date: 20051028
  Serious: No
  Sender: FDA-Public Use
  Company Number: US_0501111488

PATIENT
  Age: 50 Year
  Sex: Male

DRUGS (1)
  1. STRATTERA [Suspect]
     Indication: ATTENTION DEFICIT/HYPERACTIVITY DISORDER
     Dosage: 40 MG/1 DAY
     Dates: start: 20041201, end: 20041210

REACTIONS (5)
  - DIARRHOEA [None]
  - ERYTHEMA [None]
  - PARAESTHESIA [None]
  - PRURITUS [None]
  - STOMACH DISCOMFORT [None]
